FAERS Safety Report 25418356 (Version 2)
Quarter: 2025Q4

REPORT INFORMATION
  Report Type: Spontaneous
  Country: EU (occurrence: EU)
  Receive Date: 20250610
  Receipt Date: 20251121
  Transmission Date: 20260118
  Serious: Yes (Hospitalization)
  Sender: SANDOZ
  Company Number: EU-SAMSUNG BIOEPIS-SB-2025-19102

PATIENT
  Age: 62 Year
  Sex: Male

DRUGS (2)
  1. ETANERCEPT [Suspect]
     Active Substance: ETANERCEPT
     Indication: Rheumatoid arthritis
     Dosage: 50 MG 7 DAYS
     Route: 065
  2. METHOTREXATE [Suspect]
     Active Substance: METHOTREXATE
     Indication: Rheumatoid arthritis
     Dosage: UNK UNK, QW
     Route: 065
     Dates: end: 202503

REACTIONS (1)
  - Chest X-ray abnormal [Not Recovered/Not Resolved]

NARRATIVE: CASE EVENT DATE: 20250505
